FAERS Safety Report 17521787 (Version 1)
Quarter: 2020Q1

REPORT INFORMATION
  Report Type: Spontaneous
  Country: PT (occurrence: PT)
  Receive Date: 20200310
  Receipt Date: 20200310
  Transmission Date: 20200409
  Serious: Yes (Other)
  Sender: FDA-Public Use
  Company Number: PT-SA-2020SA060318

PATIENT
  Age: 41 Year
  Sex: Male
  Weight: 56 kg

DRUGS (14)
  1. THYMOGLOBULIN [Suspect]
     Active Substance: LAPINE T-LYMPHOCYTE IMMUNE GLOBULIN
     Indication: IMMUNOSUPPRESSION
     Dosage: 1190MG IN 7 DAYS
     Route: 042
     Dates: start: 20100630, end: 20100707
  2. MYCOSTATIN [Concomitant]
     Active Substance: NYSTATIN
     Route: 048
  3. PREDNISOLONE. [Concomitant]
     Active Substance: PREDNISOLONE
  4. CATAPRESAN [CLONIDINE HYDROCHLORIDE] [Concomitant]
     Active Substance: CLONIDINE HYDROCHLORIDE
  5. DILTIAZEM. [Concomitant]
     Active Substance: DILTIAZEM
  6. COTRIMOXAZOLE [Concomitant]
     Active Substance: SULFAMETHOXAZOLE\TRIMETHOPRIM
  7. FUROSEMIDE. [Concomitant]
     Active Substance: FUROSEMIDE
  8. GLICLAZIDE [Concomitant]
     Active Substance: GLICLAZIDE
  9. PANTOPRAZOLE [Concomitant]
     Active Substance: PANTOPRAZOLE
  10. VALGANCICLOVIR. [Concomitant]
     Active Substance: VALGANCICLOVIR
  11. POTASSIUM CHLORIDE. [Concomitant]
     Active Substance: POTASSIUM CHLORIDE
  12. LACTULOSE. [Concomitant]
     Active Substance: LACTULOSE
     Dosage: 1WALLET 2XDAY
  13. MYCOPHENOLIC ACID. [Concomitant]
     Active Substance: MYCOPHENOLIC ACID
  14. TACROLIMUS. [Concomitant]
     Active Substance: TACROLIMUS

REACTIONS (1)
  - Haemolytic anaemia [Unknown]

NARRATIVE: CASE EVENT DATE: 20100712
